FAERS Safety Report 4982405-3 (Version None)
Quarter: 2006Q2

REPORT INFORMATION
  Report Type: 
  Country: None (occurrence: None)
  Receive Date: 20060401
  Receipt Date: 20060401
  Transmission Date: 20061013
  Serious: Yes (Hospitalization)
  Sender: FDA-Public Use
  Company Number: None

PATIENT
  Age: 73 Year
  Sex: Female
  Weight: 68.0396 kg

DRUGS (1)
  1. PHENERGAN [Suspect]
     Indication: POST PROCEDURAL NAUSEA
     Dosage: 12.5 MG PRN IV PUSH
     Route: 042
     Dates: start: 20060421, end: 20060421

REACTIONS (5)
  - CYANOSIS [None]
  - EXTRAVASATION [None]
  - FEELING COLD [None]
  - INFUSION RELATED REACTION [None]
  - OXYGEN SATURATION DECREASED [None]
